FAERS Safety Report 13162670 (Version 1)
Quarter: 2017Q1

REPORT INFORMATION
  Report Type: Spontaneous
  Country: US (occurrence: US)
  Receive Date: 20170128
  Receipt Date: 20170128
  Transmission Date: 20170428
  Serious: Yes (Disabling)
  Sender: FDA-Public Use
  Company Number: None

PATIENT
  Age: 41 Year
  Sex: Male
  Weight: 76.05 kg

DRUGS (4)
  1. CIPROFLOAXACIN HCL 500MG TAB [Suspect]
     Active Substance: CIPROFLOXACIN HYDROCHLORIDE
     Indication: EAR PAIN
     Dosage: ?          QUANTITY:1 TABLET(S);?TWICE A DAY ORAL
     Route: 048
     Dates: start: 20160918, end: 20170118
  2. CIPRO [Concomitant]
     Active Substance: CIPROFLOXACIN HYDROCHLORIDE
  3. IBUPROFEN. [Concomitant]
     Active Substance: IBUPROFEN
  4. MULTIVITAMIN/MINERAL. [Concomitant]

REACTIONS (14)
  - Palpitations [None]
  - Hypoaesthesia [None]
  - Musculoskeletal stiffness [None]
  - Joint crepitation [None]
  - Pain in extremity [None]
  - Feeling abnormal [None]
  - Memory impairment [None]
  - Pain [None]
  - Refusal of treatment by patient [None]
  - Paraesthesia [None]
  - Neck pain [None]
  - Disturbance in attention [None]
  - Tinnitus [None]
  - Depersonalisation/derealisation disorder [None]

NARRATIVE: CASE EVENT DATE: 20160918
